FAERS Safety Report 5387652-7 (Version None)
Quarter: 2007Q3

REPORT INFORMATION
  Report Type: 
  Country: None (occurrence: None)
  Receive Date: 20070712
  Receipt Date: 20070712
  Transmission Date: 20080115
  Serious: Yes (Other)
  Sender: FDA-Public Use
  Company Number: None

PATIENT
  Age: 65 Year
  Sex: Female
  Weight: 84.8226 kg

DRUGS (2)
  1. REQUIP [Suspect]
     Indication: POOR QUALITY SLEEP
     Dosage: 1MG 1 PO 2 WKS + 1 MO LATER 1 DAY
     Route: 048
     Dates: start: 20060710, end: 20060825
  2. REQUIP [Suspect]
     Indication: RESTLESS LEGS SYNDROME
     Dosage: 1MG 1 PO 2 WKS + 1 MO LATER 1 DAY
     Route: 048
     Dates: start: 20060710, end: 20060825

REACTIONS (3)
  - ILL-DEFINED DISORDER [None]
  - MUSCLE SPASMS [None]
  - PAIN [None]
